FAERS Safety Report 12957730 (Version 2)
Quarter: 2016Q4

REPORT INFORMATION
  Report Type: Spontaneous
  Country: DE (occurrence: DE)
  Receive Date: 20161119
  Receipt Date: 20161229
  Transmission Date: 20170207
  Serious: Yes (Hospitalization)
  Sender: FDA-Public Use
  Company Number: DE-BAXTER-2016BAX057910

PATIENT
  Age: 59 Year
  Sex: Female
  Weight: 81.3 kg

DRUGS (7)
  1. EPIRUBICIN [Suspect]
     Active Substance: EPIRUBICIN
     Dosage: DOSE; 159 MG/QM, TOTAL 3 CYCLES
     Route: 065
     Dates: start: 201609
  2. PACLITAXEL. [Suspect]
     Active Substance: PACLITAXEL
     Indication: INVASIVE LOBULAR BREAST CARCINOMA
     Dosage: ETC SCHEME
     Route: 065
  3. NATRIUMCHLORID-TR?GERL?SUNG BAXTER [Suspect]
     Active Substance: SODIUM CHLORIDE
     Indication: MEDICATION DILUTION
     Route: 065
     Dates: start: 20160929, end: 20160929
  4. EPIRUBICIN [Suspect]
     Active Substance: EPIRUBICIN
     Indication: INVASIVE LOBULAR BREAST CARCINOMA
     Dosage: ETC SCHEME
     Route: 065
  5. ENDOXAN 1G [Suspect]
     Active Substance: CYCLOPHOSPHAMIDE
     Dosage: FIRST CYCLE
     Route: 065
     Dates: start: 20160929, end: 20160929
  6. ENDOXAN 1G [Suspect]
     Active Substance: CYCLOPHOSPHAMIDE
     Indication: INVASIVE LOBULAR BREAST CARCINOMA
     Dosage: ETC SCHEME
     Route: 065
  7. PACLITAXEL. [Suspect]
     Active Substance: PACLITAXEL
     Dosage: 225 MG/QM, TOTAL 3 CYCLES
     Route: 065
     Dates: start: 201609

REACTIONS (10)
  - Hyponatraemia [Recovered/Resolved]
  - Polyuria [Unknown]
  - Restlessness [Unknown]
  - General physical health deterioration [Unknown]
  - Anuria [Unknown]
  - Oedema peripheral [Unknown]
  - Dizziness [Unknown]
  - Weight increased [Recovered/Resolved]
  - Inappropriate antidiuretic hormone secretion [Recovered/Resolved]
  - Asthenia [Unknown]

NARRATIVE: CASE EVENT DATE: 20160929
